FAERS Safety Report 5319668-0 (Version None)
Quarter: 2007Q2

REPORT INFORMATION
  Report Type: 
  Country: None (occurrence: None)
  Receive Date: 20070508
  Receipt Date: 20070503
  Transmission Date: 20071010
  Serious: Yes (Life-Threatening, Hospitalization)
  Sender: FDA-Public Use
  Company Number: US-MERCK-0705USA00886

PATIENT
  Age: 40 Year
  Sex: Male

DRUGS (5)
  1. JANUVIA [Suspect]
     Indication: DIABETES MELLITUS NON-INSULIN-DEPENDENT
     Route: 048
     Dates: start: 20070401
  2. JANUVIA [Suspect]
     Route: 048
     Dates: end: 20070101
  3. METFORMIN [Concomitant]
     Route: 065
  4. AMARYL [Concomitant]
     Route: 065
  5. INSULIN [Concomitant]
     Route: 065

REACTIONS (1)
  - RENAL FAILURE [None]
